FAERS Safety Report 6792497-7 (Version None)
Quarter: 2010Q2

REPORT INFORMATION
  Report Type: 
  Country: None (occurrence: None)
  Receive Date: 20100624
  Receipt Date: 20080824
  Transmission Date: 20101027
  Serious: No
  Sender: FDA-Public Use
  Company Number: US-PFIZER INC-2008071063

PATIENT
  Sex: Female
  Weight: 61.4 kg

DRUGS (3)
  1. GEODON [Suspect]
     Indication: MANIA
  2. GEODON [Suspect]
     Indication: ANXIETY
  3. NEURONTIN [Suspect]
     Indication: ANXIETY
     Route: 048

REACTIONS (5)
  - ANXIETY [None]
  - DISSOCIATION [None]
  - FATIGUE [None]
  - INSOMNIA [None]
  - PRESYNCOPE [None]
